FAERS Safety Report 6393449-1 (Version None)
Quarter: 2009Q4

REPORT INFORMATION
  Report Type: 
  Country: None (occurrence: None)
  Receive Date: 20091008
  Receipt Date: 20090924
  Transmission Date: 20100525
  Serious: Yes (Hospitalization)
  Sender: FDA-Public Use
  Company Number: US-PFIZER INC-2009263558

PATIENT
  Sex: Female
  Weight: 53 kg

DRUGS (3)
  1. SUNITINIB MALATE [Suspect]
     Indication: BREAST CANCER
     Dosage: 37.5 MG, 1X/DAY
     Route: 048
     Dates: start: 20090520, end: 20090903
  2. VICODIN [Concomitant]
     Indication: PAIN
     Dosage: 1 TABLET Q4H PRN
     Route: 048
  3. LISINOPRIL [Concomitant]
     Dosage: 10 MG, 1X/DAY

REACTIONS (1)
  - MOUTH ULCERATION [None]
